FAERS Safety Report 22089909 (Version 1)
Quarter: 2023Q1

REPORT INFORMATION
  Report Type: Spontaneous
  Country: US (occurrence: None)
  Receive Date: 20230311
  Receipt Date: 20230311
  Transmission Date: 20230418
  Serious: Yes (Hospitalization)
  Sender: FDA-Public Use
  Company Number: None

PATIENT
  Sex: Female

DRUGS (1)
  1. STELARA [Suspect]
     Active Substance: USTEKINUMAB
     Indication: Crohn^s disease
     Dosage: 90 MG/ML SUBCUTANEOUS  ??INJECT 1 SYRINGE SUBCUTANEOUSLY ONCE EVERY 4 WEEKS
     Route: 058
     Dates: start: 20220723

REACTIONS (1)
  - Crohn^s disease [None]
